FAERS Safety Report 21568100 (Version 1)
Quarter: 2022Q4

REPORT INFORMATION
  Report Type: Spontaneous
  Country: NL (occurrence: NL)
  Receive Date: 20221108
  Receipt Date: 20221108
  Transmission Date: 20230113
  Serious: Yes (Other)
  Sender: FDA-Public Use
  Company Number: None

PATIENT
  Sex: Male
  Weight: 89 kg

DRUGS (1)
  1. ROSUVASTATIN [Suspect]
     Active Substance: ROSUVASTATIN
     Indication: Hypercholesterolaemia
     Dosage: 20 MILLIGRAM DAILY;  ROSUVASTATINE TABLET 20MG / BRAND NAME NOT SPECIFIED, THERAPY END DATE : ASKU
     Dates: start: 20050301

REACTIONS (1)
  - Muscle rupture [Recovered/Resolved]
